FAERS Safety Report 18945673 (Version 2)
Quarter: 2021Q1

REPORT INFORMATION
  Report Type: Spontaneous
  Country: GR (occurrence: GR)
  Receive Date: 20210226
  Receipt Date: 20210331
  Transmission Date: 20210420
  Serious: Yes (Other)
  Sender: FDA-Public Use
  Company Number: NVSC2021GR045245

PATIENT

DRUGS (1)
  1. CANAKINUMAB. [Suspect]
     Active Substance: CANAKINUMAB
     Indication: STILL^S DISEASE
     Dosage: 150?300 MG, EVERY 4 OR 8 WEEKS
     Route: 065

REACTIONS (2)
  - Pneumonia [Unknown]
  - Leukopenia [Unknown]
